FAERS Safety Report 6889998-X (Version None)
Quarter: 2010Q3

REPORT INFORMATION
  Report Type: 
  Country: None (occurrence: None)
  Receive Date: 20100730
  Receipt Date: 20080701
  Transmission Date: 20110219
  Serious: No
  Sender: FDA-Public Use
  Company Number: US-PFIZER INC-2008047970

PATIENT
  Sex: Female
  Weight: 77.7 kg

DRUGS (8)
  1. LIPITOR [Suspect]
     Indication: BLOOD CHOLESTEROL INCREASED
     Dates: start: 20080510, end: 20080515
  2. CITALOPRAM [Concomitant]
  3. XANAX [Concomitant]
  4. CALCIUM WITH VITAMIN D [Concomitant]
  5. ZOLPIDEM [Concomitant]
     Indication: SLEEP DISORDER
  6. ALL OTHER THERAPEUTIC PRODUCTS [Concomitant]
     Dosage: 50/500
  7. PRAVACHOL [Concomitant]
  8. CRESTOR [Concomitant]

REACTIONS (6)
  - ABDOMINAL PAIN [None]
  - ABDOMINAL PAIN UPPER [None]
  - JOINT INJURY [None]
  - JOINT RANGE OF MOTION DECREASED [None]
  - PAIN IN EXTREMITY [None]
  - TRIGGER FINGER [None]
